FAERS Safety Report 13412437 (Version 3)
Quarter: 2023Q2

REPORT INFORMATION
  Report Type: Spontaneous
  Country: US (occurrence: US)
  Receive Date: 20170406
  Receipt Date: 20230510
  Transmission Date: 20230721
  Serious: No
  Sender: FDA-Public Use
  Company Number: US-JNJFOC-20170310864

PATIENT
  Age: 26 Year
  Sex: Male

DRUGS (10)
  1. RISPERDAL [Suspect]
     Active Substance: RISPERIDONE
     Indication: Substance-induced psychotic disorder
     Route: 048
     Dates: start: 20060101, end: 20070101
  2. RISPERDAL [Suspect]
     Active Substance: RISPERIDONE
     Route: 048
     Dates: start: 20070621, end: 20070720
  3. RISPERDAL [Suspect]
     Active Substance: RISPERIDONE
     Route: 048
     Dates: start: 20080320, end: 20120510
  4. INVEGA SUSTENNA [Suspect]
     Active Substance: PALIPERIDONE PALMITATE
     Indication: Substance-induced psychotic disorder
     Route: 030
  5. INVEGA SUSTENNA [Suspect]
     Active Substance: PALIPERIDONE PALMITATE
     Route: 030
     Dates: start: 20120510
  6. INVEGA SUSTENNA [Suspect]
     Active Substance: PALIPERIDONE PALMITATE
     Dosage: MONTHLY THEN EVERY 28 DAYS
     Route: 030
     Dates: start: 20120517, end: 20160616
  7. INVEGA SUSTENNA [Suspect]
     Active Substance: PALIPERIDONE PALMITATE
     Route: 030
     Dates: end: 20160623
  8. INVEGA SUSTENNA [Suspect]
     Active Substance: PALIPERIDONE PALMITATE
     Dosage: MONTHLY THEN EVERY 28 DAYS
     Route: 030
     Dates: start: 20160623
  9. INVEGA [Suspect]
     Active Substance: PALIPERIDONE
     Indication: Substance-induced psychotic disorder
     Route: 048
     Dates: start: 20121113
  10. INVEGA [Suspect]
     Active Substance: PALIPERIDONE
     Indication: Hallucinations, mixed
     Route: 048
     Dates: start: 20160603

REACTIONS (4)
  - Emotional disorder [Unknown]
  - Gynaecomastia [Unknown]
  - Pruritus [Unknown]
  - Drug diversion [Unknown]

NARRATIVE: CASE EVENT DATE: 20160101
